FAERS Safety Report 20073693 (Version 1)
Quarter: 2021Q4

REPORT INFORMATION
  Report Type: Spontaneous
  Country: ES (occurrence: ES)
  Receive Date: 20211116
  Receipt Date: 20211116
  Transmission Date: 20220303
  Serious: Yes (Other)
  Sender: FDA-Public Use
  Company Number: None

PATIENT
  Age: 54 Year
  Sex: Female
  Weight: 55 kg

DRUGS (2)
  1. METHOTREXATE SODIUM [Suspect]
     Active Substance: METHOTREXATE SODIUM
     Indication: Immunosuppression
     Dosage: EL METROTEXATE LO SUSPEND??? 15 D???AS ANTES DE LAS DOSIS DE LAS VACUNAS, EL RESTO DE MEDICACI???N
     Dates: start: 2020, end: 202106
  2. SPIKEVAX [Suspect]
     Active Substance: ELASOMERAN
     Indication: COVID-19 immunisation
     Dosage: 2 DOSES ADMINISTERED - ADMINISTRATION SITE: LEFT ARM THE 2 DOSES
     Dates: start: 20210622, end: 20210622

REACTIONS (3)
  - Erythema nodosum [Recovering/Resolving]
  - Vaccination site lymphadenopathy [Recovering/Resolving]
  - Fatigue [Recovering/Resolving]

NARRATIVE: CASE EVENT DATE: 20210622
